FAERS Safety Report 5006895-5 (Version None)
Quarter: 2006Q2

REPORT INFORMATION
  Report Type: 
  Country: None (occurrence: None)
  Receive Date: 20060516
  Receipt Date: 20060508
  Transmission Date: 20061013
  Serious: Yes (Life-Threatening, Hospitalization)
  Sender: FDA-Public Use
  Company Number: 2006BH008389

PATIENT
  Age: 71 Year
  Sex: Male

DRUGS (7)
  1. CEFTRIAXONE [Suspect]
     Indication: PNEUMONIA
     Dosage: 1 GM; ONCE; IV
     Route: 042
     Dates: start: 20060313, end: 20060313
  2. K-DUR 10 [Concomitant]
  3. LANOXIN [Concomitant]
  4. ALLOPURINOL [Concomitant]
  5. ASPIRIN [Concomitant]
  6. WELLBUTRIN [Concomitant]
  7. DEMADEX [Concomitant]

REACTIONS (1)
  - ANAPHYLACTIC SHOCK [None]
